FAERS Safety Report 17620251 (Version 1)
Quarter: 2020Q2

REPORT INFORMATION
  Report Type: Spontaneous
  Country: US (occurrence: US)
  Receive Date: 20200403
  Receipt Date: 20200403
  Transmission Date: 20200713
  Serious: No
  Sender: FDA-Public Use
  Company Number: US-GLAXOSMITHKLINE-US2020057128

PATIENT
  Age: 83 Year
  Sex: Female

DRUGS (1)
  1. ABREVA [Suspect]
     Active Substance: DOCOSANOL
     Indication: ORAL HERPES
     Dosage: UNK(5 TIMES)
     Dates: start: 20200313, end: 20200323

REACTIONS (2)
  - Condition aggravated [Unknown]
  - Oral herpes [Unknown]
